FAERS Safety Report 9835189 (Version 1)
Quarter: 2014Q1

REPORT INFORMATION
  Report Type: Spontaneous
  Country: US (occurrence: US)
  Receive Date: 20140122
  Receipt Date: 20140122
  Transmission Date: 20141002
  Serious: No
  Sender: FDA-Public Use
  Company Number: US-BRISTOL-MYERS SQUIBB COMPANY-19851534

PATIENT
  Sex: Male

DRUGS (11)
  1. ELIQUIS [Suspect]
     Dates: start: 201311
  2. SIMVASTATIN [Concomitant]
  3. AVODART [Concomitant]
  4. TAMSULOSIN [Concomitant]
  5. VITAMIN [Concomitant]
  6. GLUCOSAMINE [Concomitant]
  7. VITAMIN D [Concomitant]
  8. FUROSEMIDE [Concomitant]
  9. VITAMIN B COMPLEX [Concomitant]
  10. FISH OIL [Concomitant]
  11. WARFARIN [Concomitant]

REACTIONS (5)
  - Musculoskeletal stiffness [Unknown]
  - Dizziness [Unknown]
  - Swelling face [Unknown]
  - Respiratory disorder [Unknown]
  - Syncope [Unknown]
